FAERS Safety Report 4537580-1 (Version None)
Quarter: 2004Q4

REPORT INFORMATION
  Report Type: 
  Country: None (occurrence: None)
  Receive Date: 20041214
  Receipt Date: 20030801
  Transmission Date: 20050328
  Serious: Yes (Other)
  Sender: FDA-Public Use
  Company Number: 10037029-NC019109-1

PATIENT

DRUGS (1)
  1. VANCOCIN HCL [Suspect]
     Dosage: 1 GM/200ML
     Dates: start: 20030716, end: 20030728

REACTIONS (2)
  - HYPERSENSITIVITY [None]
  - RASH [None]
